FAERS Safety Report 6260628-3 (Version None)
Quarter: 2009Q4

REPORT INFORMATION
  Report Type: 
  Country: None (occurrence: None)
  Receive Date: 20090706
  Receipt Date: 20090625
  Transmission Date: 20100525
  Serious: Yes (Death)
  Sender: FDA-Public Use
  Company Number: 2009-199509-NL

PATIENT
  Age: 19 Year
  Sex: Male

DRUGS (2)
  1. DEXAMETHASONE [Suspect]
     Dates: start: 19700719, end: 19700807
  2. ANTI-COAGULATION [Suspect]

REACTIONS (8)
  - CEREBRAL INFARCTION [None]
  - DEEP VEIN THROMBOSIS [None]
  - EXTRADURAL HAEMATOMA [None]
  - HEAD INJURY [None]
  - PULMONARY EMBOLISM [None]
  - PULMONARY INFARCTION [None]
  - SHOCK HAEMORRHAGIC [None]
  - SMALL INTESTINAL HAEMORRHAGE [None]
